FAERS Safety Report 4483882-7 (Version None)
Quarter: 2004Q4

REPORT INFORMATION
  Report Type: 
  Country: None (occurrence: None)
  Receive Date: 20041020
  Receipt Date: 20041013
  Transmission Date: 20050328
  Serious: Yes (Other)
  Sender: FDA-Public Use
  Company Number: 2004-09-1025

PATIENT
  Age: 16 Year
  Sex: Male

DRUGS (1)
  1. CLARITIN-D [Suspect]
     Indication: NASAL CONGESTION
     Dosage: ONE TAB QD ORAL
     Route: 048
     Dates: start: 20040909, end: 20040911

REACTIONS (4)
  - DIZZINESS [None]
  - LOSS OF CONSCIOUSNESS [None]
  - NAUSEA [None]
  - PALLOR [None]
